FAERS Safety Report 16483135 (Version 2)
Quarter: 2020Q1

REPORT INFORMATION
  Report Type: Spontaneous
  Country: JP (occurrence: JP)
  Receive Date: 20190627
  Receipt Date: 20200211
  Transmission Date: 20200409
  Serious: Yes (Death)
  Sender: FDA-Public Use
  Company Number: JP-PINNACLE BIOLOGICS BV-2019-CLI-000006

PATIENT

DRUGS (1)
  1. PHOTOFRIN [Suspect]
     Active Substance: PORFIMER SODIUM
     Indication: OESOPHAGEAL CARCINOMA
     Dosage: 2 MG/KG, UNK
     Route: 042

REACTIONS (3)
  - Oesophageal ulcer [Fatal]
  - Aorto-oesophageal fistula [Fatal]
  - Gastrointestinal haemorrhage [Fatal]
